FAERS Safety Report 9516054 (Version 2)
Quarter: 2013Q3

REPORT INFORMATION
  Report Type: Spontaneous
  Country: US (occurrence: US)
  Receive Date: 20130911
  Receipt Date: 20130928
  Transmission Date: 20140515
  Serious: Yes (Other)
  Sender: FDA-Public Use
  Company Number: US-ROCHE-1273809

PATIENT
  Age: 42 Year
  Sex: Male

DRUGS (5)
  1. XOLAIR [Suspect]
     Indication: ASTHMA
     Route: 058
     Dates: start: 20130808, end: 20130906
  2. ALBUTEROL SULFATE [Suspect]
     Indication: ASTHMA
     Dosage: 2 PUFFS, INHALATION
     Route: 065
  3. FLONASE [Concomitant]
     Indication: RHINITIS ALLERGIC
     Dosage: 1-2 SPRAY
     Route: 045
     Dates: start: 20130910
  4. SINGULAIR [Concomitant]
     Indication: ASTHMA
     Route: 048
  5. DULERA [Concomitant]
     Indication: ASTHMA
     Dosage: INHALATION
     Route: 065
     Dates: start: 20121101

REACTIONS (2)
  - Anaphylactic reaction [Recovered/Resolved]
  - Disturbance in attention [Unknown]
